FAERS Safety Report 11175055 (Version 1)
Quarter: 2015Q2

REPORT INFORMATION
  Report Type: Other
  Country: FR (occurrence: FR)
  Receive Date: 20150609
  Receipt Date: 20150609
  Transmission Date: 20150821
  Serious: Yes (Hospitalization, Other)
  Sender: FDA-Public Use
  Company Number: FR-EMD SERONO-23024M02FRA

PATIENT
  Age: 36 Year
  Sex: Female
  Weight: 64 kg

DRUGS (3)
  1. MEGAMAG [Concomitant]
     Active Substance: MAGNESIUM ASPARTATE
     Indication: ASTHENIA
     Dates: start: 2002, end: 20020523
  2. REBIF [Suspect]
     Active Substance: INTERFERON BETA-1A
     Route: 058
     Dates: start: 200108, end: 20020517
  3. REBIF [Suspect]
     Active Substance: INTERFERON BETA-1A
     Indication: MULTIPLE SCLEROSIS
     Route: 058
     Dates: start: 200002

REACTIONS (2)
  - Cutaneous vasculitis [Recovered/Resolved]
  - Renal impairment [Unknown]

NARRATIVE: CASE EVENT DATE: 200205
